FAERS Safety Report 4899327-9 (Version None)
Quarter: 2006Q1

REPORT INFORMATION
  Report Type: 
  Country: None (occurrence: None)
  Receive Date: 20060131
  Receipt Date: 20060118
  Transmission Date: 20060701
  Serious: Yes (Hospitalization)
  Sender: FDA-Public Use
  Company Number: 2006010187

PATIENT
  Age: 43 Year
  Sex: Female

DRUGS (3)
  1. SILDENAFIL CITRATE [Suspect]
     Indication: PULMONARY HYPERTENSION
     Dosage: 50 MG (25 MG, 2 IN 1 D), ORAL
     Route: 047
     Dates: start: 20060110
  2. CAPTOPRIL [Concomitant]
  3. ASPIRIN [Concomitant]

REACTIONS (1)
  - CONVULSION [None]
